FAERS Safety Report 4714265-X (Version None)
Quarter: 2005Q3

REPORT INFORMATION
  Report Type: 
  Country: None (occurrence: None)
  Receive Date: 20050713
  Receipt Date: 20050629
  Transmission Date: 20060218
  Serious: Yes (Death, Hospitalization)
  Sender: FDA-Public Use
  Company Number: HQWYE871530JUN05

PATIENT
  Age: 83 Year
  Sex: Male

DRUGS (9)
  1. CORDARONE [Suspect]
  2. ACETAMINOPHEN [Suspect]
     Dosage: 500 MG 2X PER 1 DAY ORAL
     Route: 048
     Dates: end: 20050408
  3. DIGOXIN [Suspect]
     Dosage: 0.125 MG 1X PER 1 DAY
     Dates: end: 20050408
  4. KARDEGIC (ACETYLSALICYLATE LYSINE,) [Suspect]
  5. PLAVIX [Suspect]
     Dosage: 75 MG 1X PER 1 DAY ORAL
     Route: 048
     Dates: end: 20050408
  6. TRIMEBUTINE (TRIMEBUTINE,) [Suspect]
     Dosage: 1 UNIT 1X PER 1 DAY
     Dates: end: 20050408
  7. VOLTAREN [Suspect]
     Dosage: 50 MG 1X PER 1 DAY
     Dates: end: 20050408
  8. ZOLOFT [Suspect]
     Dosage: 1 UNIT 1X PER 1 DAY
     Dates: start: 20050401, end: 20050408
  9. LORAZEPAM [Concomitant]

REACTIONS (11)
  - CONFUSIONAL STATE [None]
  - DEPRESSED LEVEL OF CONSCIOUSNESS [None]
  - HAEMATOCRIT DECREASED [None]
  - HYPONATRAEMIA [None]
  - INFLAMMATION [None]
  - LUNG DISORDER [None]
  - NERVOUS SYSTEM DISORDER [None]
  - PROTEIN TOTAL DECREASED [None]
  - PYREXIA [None]
  - QUADRIPLEGIA [None]
  - URINE SODIUM DECREASED [None]
